FAERS Safety Report 26023849 (Version 1)
Quarter: 2025Q4

REPORT INFORMATION
  Report Type: Spontaneous
  Country: CN (occurrence: CN)
  Receive Date: 20251111
  Receipt Date: 20251111
  Transmission Date: 20260117
  Serious: Yes (Hospitalization, Other)
  Sender: BAXTER
  Company Number: None

PATIENT
  Age: 65 Year
  Sex: Male
  Weight: 43.6 kg

DRUGS (8)
  1. CYCLOPHOSPHAMIDE [Suspect]
     Active Substance: CYCLOPHOSPHAMIDE
     Indication: Lymphoma
     Dosage: 1.1 G, QD
     Route: 041
     Dates: start: 20251022, end: 20251022
  2. SODIUM CHLORIDE [Suspect]
     Active Substance: SODIUM CHLORIDE
     Dosage: 20 ML, QD (WITH VINCRISTINE SULFATE)
     Route: 042
     Dates: start: 20251022, end: 20251022
  3. RITUXIMAB [Suspect]
     Active Substance: RITUXIMAB
     Indication: Lymphoma
     Dosage: 500 MG, QD, MICROPUMP DRIP 30 DROPS/MIN
     Route: 041
     Dates: start: 20251021, end: 20251021
  4. DOXORUBICIN HYDROCHLORIDE [Suspect]
     Active Substance: DOXORUBICIN HYDROCHLORIDE
     Indication: Lymphoma
     Dosage: 58 MG, QD
     Route: 041
     Dates: start: 20251022, end: 20251022
  5. VINCRISTINE SULFATE [Suspect]
     Active Substance: VINCRISTINE SULFATE
     Indication: Lymphoma
     Dosage: 2 MG, QD
     Route: 042
     Dates: start: 20251022, end: 20251022
  6. SODIUM CHLORIDE [Suspect]
     Active Substance: SODIUM CHLORIDE
     Indication: Medication dilution
     Dosage: 500 ML, QD, MICROPUMP DRIP 30 DROPS/MIN (WITH RITUXIMAB)
     Route: 041
     Dates: start: 20251021, end: 20251021
  7. SODIUM CHLORIDE [Suspect]
     Active Substance: SODIUM CHLORIDE
     Dosage: 500 ML, QD (WITH CYCLOPHOSPHAMIDE)
     Route: 041
     Dates: start: 20251022, end: 20251022
  8. DEXTROSE [Suspect]
     Active Substance: DEXTROSE MONOHYDRATE
     Indication: Medication dilution
     Dosage: 100 ML, QD (WITH DOXORUBICIN HYDROCHLORIDE)
     Route: 041
     Dates: start: 20251022, end: 20251022

REACTIONS (3)
  - Cytopenia [Recovering/Resolving]
  - White blood cell count decreased [Recovered/Resolved]
  - Neutrophil count decreased [Recovered/Resolved]

NARRATIVE: CASE EVENT DATE: 20251028
